FAERS Safety Report 23285219 (Version 1)
Quarter: 2023Q4

REPORT INFORMATION
  Report Type: Spontaneous
  Country: US (occurrence: None)
  Receive Date: 20231211
  Receipt Date: 20231211
  Transmission Date: 20240110
  Serious: Yes (Hospitalization, Other)
  Sender: FDA-Public Use
  Company Number: 2023A275124

PATIENT
  Sex: Female

DRUGS (1)
  1. FASLODEX [Suspect]
     Active Substance: FULVESTRANT
     Indication: Breast cancer stage IV
     Route: 030
     Dates: start: 20230601, end: 20231121

REACTIONS (10)
  - Illness [Unknown]
  - Thrombocytopenia [Unknown]
  - Platelet count decreased [Unknown]
  - Skin disorder [Unknown]
  - Hepatic enzyme abnormal [Unknown]
  - Purpura [Unknown]
  - Blood urea increased [Unknown]
  - Anion gap decreased [Unknown]
  - Alkalosis [Unknown]
  - Laboratory test abnormal [Unknown]
